FAERS Safety Report 22273388 (Version 2)
Quarter: 2023Q2

REPORT INFORMATION
  Report Type: Report from Study
  Country: US (occurrence: US)
  Receive Date: 20230502
  Receipt Date: 20230507
  Transmission Date: 20230721
  Serious: No
  Sender: FDA-Public Use
  Company Number: US-002147023-NVSC2023US095358

PATIENT
  Sex: Male

DRUGS (1)
  1. ENTRESTO [Suspect]
     Active Substance: SACUBITRIL\VALSARTAN
     Indication: Product used for unknown indication
     Dosage: 1 DOSAGE FORM, BID, (97/103 MG)
     Route: 048
     Dates: start: 202209

REACTIONS (4)
  - Abdominal distension [Unknown]
  - Joint swelling [Unknown]
  - Cardiac murmur [Unknown]
  - Heart valve incompetence [Not Recovered/Not Resolved]
